FAERS Safety Report 8607117 (Version 3)
Quarter: 2014Q1

REPORT INFORMATION
  Report Type: Spontaneous
  Country: US (occurrence: US)
  Receive Date: 20120611
  Receipt Date: 20140124
  Transmission Date: 20141002
  Serious: Yes (Other)
  Sender: FDA-Public Use
  Company Number: US-ASTRAZENECA-2012SE34874

PATIENT
  Age: 25978 Day
  Sex: Male
  Weight: 85.7 kg

DRUGS (2)
  1. NEXIUM [Suspect]
     Dosage: TWICE DAILY
     Route: 048
     Dates: start: 20090608
  2. ROLAIDS [Concomitant]

REACTIONS (6)
  - Hip fracture [Unknown]
  - Femur fracture [Unknown]
  - Osteoporosis [Unknown]
  - Arthritis [Unknown]
  - Multiple fractures [Unknown]
  - Diabetes mellitus [Unknown]
